FAERS Safety Report 4627907-4 (Version None)
Quarter: 2005Q2

REPORT INFORMATION
  Report Type: 
  Country: None (occurrence: None)
  Receive Date: 20050401
  Receipt Date: 20050322
  Transmission Date: 20051028
  Serious: Yes (Other)
  Sender: FDA-Public Use
  Company Number: 8009692

PATIENT

DRUGS (2)
  1. KEPPRA [Suspect]
     Dosage: TRP
     Route: 064
     Dates: start: 20040101, end: 20050323
  2. LAMICTAL [Suspect]
     Dosage: TRP
     Route: 064
     Dates: start: 20040101, end: 20041001

REACTIONS (7)
  - CAESAREAN SECTION [None]
  - CONVULSION [None]
  - DIABETES MELLITUS INADEQUATE CONTROL [None]
  - DRUG EXPOSURE DURING PREGNANCY [None]
  - PREGNANCY [None]
  - PREMATURE BABY [None]
  - THERAPY NON-RESPONDER [None]
